FAERS Safety Report 5959030-0 (Version None)
Quarter: 2008Q4

REPORT INFORMATION
  Report Type: 
  Country: None (occurrence: None)
  Receive Date: 20081118
  Receipt Date: 20081118
  Transmission Date: 20090506
  Serious: Yes (Other)
  Sender: FDA-Public Use
  Company Number: None

PATIENT

DRUGS (1)
  1. FER-IN-SOL 15 MG/0.6 ML OR 15 MG/1 ML ENFAMIL/MEAD JOHNSON [Suspect]
     Dosage: PO
     Route: 048

REACTIONS (2)
  - CIRCUMSTANCE OR INFORMATION CAPABLE OF LEADING TO MEDICATION ERROR [None]
  - MEDICATION ERROR [None]
